FAERS Safety Report 7119636-2 (Version None)
Quarter: 2010Q4

REPORT INFORMATION
  Report Type: 
  Country: None (occurrence: None)
  Receive Date: 20101115
  Receipt Date: 20101103
  Transmission Date: 20110411
  Serious: Yes (Hospitalization)
  Sender: FDA-Public Use
  Company Number: 2010MA004282

PATIENT
  Age: 64 Year
  Sex: Male

DRUGS (3)
  1. PROPRANOLOL HCL [Suspect]
  2. ESOMEPRAZOLE (ESOMEPRAZOLE) [Suspect]
     Indication: BARRETT'S OESOPHAGUS
     Dosage: 80 MG;QD;PO
     Route: 048
  3. ACRTYLSALICYLIC ACID [Suspect]
     Indication: BARRETT'S OESOPHAGUS
     Dosage: 300 MG QD, PO
     Route: 048
     Dates: start: 20050927, end: 20100920

REACTIONS (2)
  - HEPATITIS ALCOHOLIC [None]
  - HYPOTENSION [None]
